FAERS Safety Report 25069404 (Version 1)
Quarter: 2025Q1

REPORT INFORMATION
  Report Type: Report from Study
  Country: CO (occurrence: CO)
  Receive Date: 20250312
  Receipt Date: 20250312
  Transmission Date: 20250409
  Serious: Yes (Other)
  Sender: ALEXION PHARMACEUTICALS
  Company Number: CO-AstraZeneca-CH-00820926A

PATIENT
  Age: 72 Year
  Weight: 45 kg

DRUGS (1)
  1. ACALABRUTINIB [Suspect]
     Active Substance: ACALABRUTINIB
     Indication: Chronic lymphocytic leukaemia
     Dosage: 100 MILLIGRAM, Q12H
     Route: 065

REACTIONS (7)
  - Anosmia [Recovering/Resolving]
  - Taste disorder [Recovering/Resolving]
  - Disorientation [Recovering/Resolving]
  - Deafness [Recovering/Resolving]
  - Tooth loss [Recovering/Resolving]
  - Therapy interrupted [Recovering/Resolving]
  - Depressed mood [Recovering/Resolving]
